FAERS Safety Report 16030431 (Version 1)
Quarter: 2019Q1

REPORT INFORMATION
  Report Type: Spontaneous
  Country: GB (occurrence: GB)
  Receive Date: 20190304
  Receipt Date: 20190304
  Transmission Date: 20190418
  Serious: Yes (Other)
  Sender: FDA-Public Use
  Company Number: GB-PFIZER INC-2019086081

PATIENT
  Age: 54 Year
  Sex: Female
  Weight: 76.2 kg

DRUGS (2)
  1. MIRTAZAPINE. [Concomitant]
     Active Substance: MIRTAZAPINE
     Dosage: 15 MG, UNK
  2. KETAMINE HCL [Suspect]
     Active Substance: KETAMINE HYDROCHLORIDE
     Indication: DEPRESSION SUICIDAL
     Dosage: UNK
     Route: 051
     Dates: start: 20171013, end: 20171013

REACTIONS (7)
  - Product use in unapproved indication [Recovered/Resolved]
  - Head discomfort [Recovered/Resolved]
  - Dyspnoea [Recovered/Resolved]
  - Loss of consciousness [Recovered/Resolved]
  - Protrusion tongue [Recovered/Resolved]
  - Screaming [Recovered/Resolved]
  - Dyskinesia [Recovered/Resolved]

NARRATIVE: CASE EVENT DATE: 20171013
